FAERS Safety Report 4464887-9 (Version None)
Quarter: 2004Q4

REPORT INFORMATION
  Report Type: 
  Country: None (occurrence: None)
  Receive Date: 20041004
  Receipt Date: 20040120
  Transmission Date: 20050328
  Serious: No
  Sender: FDA-Public Use
  Company Number: 359567

PATIENT
  Age: 65 Year
  Sex: Male

DRUGS (5)
  1. COREG [Suspect]
     Dosage: 25MG TWICE PER DAY
     Route: 048
  2. CAPTOPRIL [Concomitant]
  3. GEMFIBROZIL [Concomitant]
  4. DILTIAZEM [Concomitant]
  5. ASPIRIN [Concomitant]

REACTIONS (1)
  - ONYCHOMADESIS [None]
